FAERS Safety Report 8912551 (Version 1)
Quarter: 2012Q4

REPORT INFORMATION
  Report Type: 
  Country: CA (occurrence: CA)
  Receive Date: 20121115
  Receipt Date: 20121115
  Transmission Date: 20130627
  Serious: Yes (Other)
  Sender: FDA-Public Use
  Company Number: CA-ASTRAZENECA-2012SE85619

PATIENT
  Age: 65 Year
  Sex: Female

DRUGS (1)
  1. SYMBICORT TURBUHALER [Suspect]
     Route: 055

REACTIONS (6)
  - Dyspnoea [Unknown]
  - Dry mouth [Unknown]
  - Dysphagia [Unknown]
  - Oedema peripheral [Unknown]
  - Swollen tongue [Unknown]
  - Dysphonia [Unknown]
